FAERS Safety Report 22169251 (Version 1)
Quarter: 2023Q2

REPORT INFORMATION
  Report Type: Spontaneous
  Country: GB (occurrence: GB)
  Receive Date: 20230404
  Receipt Date: 20230404
  Transmission Date: 20230722
  Serious: Yes (Other)
  Sender: FDA-Public Use
  Company Number: GB-002147023-NVSC2023GB074902

PATIENT

DRUGS (1)
  1. METHOTREXATE [Suspect]
     Active Substance: METHOTREXATE
     Indication: Polymyositis
     Dosage: UNK, UNKNOWN
     Route: 065

REACTIONS (2)
  - Epstein-Barr virus associated lymphoproliferative disorder [Recovered/Resolved]
  - Product use in unapproved indication [Unknown]
